FAERS Safety Report 9347072 (Version 1)
Quarter: 2013Q2

REPORT INFORMATION
  Report Type: Report from Study
  Country: FR (occurrence: FR)
  Receive Date: 20130613
  Receipt Date: 20130613
  Transmission Date: 20140414
  Serious: Yes (Other)
  Sender: FDA-Public Use
  Company Number: FR-GLAXOSMITHKLINE-B0894664A

PATIENT
  Age: 69 Year
  Sex: Male

DRUGS (1)
  1. REVOLADE [Suspect]
     Indication: IDIOPATHIC THROMBOCYTOPENIC PURPURA
     Dosage: 50MG PER DAY
     Route: 048

REACTIONS (5)
  - Haemorrhagic disorder [Unknown]
  - Mouth haemorrhage [Unknown]
  - Blister [Unknown]
  - Fatigue [Unknown]
  - Therapeutic response decreased [Unknown]
